FAERS Safety Report 25405027 (Version 1)
Quarter: 2025Q2

REPORT INFORMATION
  Report Type: Spontaneous
  Country: IN (occurrence: IN)
  Receive Date: 20250606
  Receipt Date: 20250606
  Transmission Date: 20250716
  Serious: Yes (Other)
  Sender: RANBAXY
  Company Number: IN-SUN PHARMACEUTICAL INDUSTRIES LTD-2025R1-509764

PATIENT
  Age: 29 Year
  Sex: Female

DRUGS (1)
  1. SULFASALAZINE [Suspect]
     Active Substance: SULFASALAZINE
     Indication: Product used for unknown indication
     Dosage: 1500 MILLIGRAM, QD
     Route: 065

REACTIONS (7)
  - Agranulocytosis [Recovering/Resolving]
  - Normochromic normocytic anaemia [Recovering/Resolving]
  - Respiratory tract congestion [Recovering/Resolving]
  - Leukopenia [Recovering/Resolving]
  - Swelling face [Recovering/Resolving]
  - Ulcer [Recovering/Resolving]
  - Gingivitis [Recovering/Resolving]
